FAERS Safety Report 5708713-6 (Version None)
Quarter: 2008Q2

REPORT INFORMATION
  Report Type: 
  Country: None (occurrence: None)
  Receive Date: 20080417
  Receipt Date: 20080410
  Transmission Date: 20081010
  Serious: Yes (Hospitalization, Other)
  Sender: FDA-Public Use
  Company Number: US-ABBOTT-08P-163-0446726-00

PATIENT
  Sex: Female
  Weight: 126.67 kg

DRUGS (5)
  1. SYNTHROID [Suspect]
     Indication: DRUG USE FOR UNKNOWN INDICATION
     Route: 048
     Dates: start: 20000101, end: 20031001
  2. SYNTHROID [Suspect]
     Indication: HYPOTHYROIDISM
     Dates: start: 19880101, end: 19980101
  3. SYNTHROID [Suspect]
     Dates: start: 20050101, end: 20060101
  4. SYNTHROID [Suspect]
     Dates: start: 20060101, end: 20071201
  5. SYNTHROID [Suspect]
     Dates: start: 20080401

REACTIONS (4)
  - DRUG INEFFECTIVE [None]
  - FATIGUE [None]
  - HERPES ZOSTER [None]
  - THYROID NEOPLASM [None]
